FAERS Safety Report 10608970 (Version 3)
Quarter: 2015Q3

REPORT INFORMATION
  Report Type: Spontaneous
  Country: US (occurrence: US)
  Receive Date: 20141125
  Receipt Date: 20150727
  Transmission Date: 20151125
  Serious: Yes (Hospitalization, Other)
  Sender: FDA-Public Use
  Company Number: US-ASTELLAS-2014US018161

PATIENT
  Age: 42 Year
  Sex: Male

DRUGS (2)
  1. PROGRAF [Suspect]
     Active Substance: TACROLIMUS\TACROLIMUS ANHYDROUS
     Indication: LIVER TRANSPLANT
     Route: 048
     Dates: start: 20041106
  2. PROGRAF [Suspect]
     Active Substance: TACROLIMUS\TACROLIMUS ANHYDROUS
     Route: 048

REACTIONS (8)
  - Back injury [Unknown]
  - Back disorder [Unknown]
  - Insomnia [Unknown]
  - Arthralgia [Unknown]
  - Hospitalisation [Unknown]
  - Calculus ureteric [Unknown]
  - Bone loss [Unknown]
  - Malaise [Unknown]

NARRATIVE: CASE EVENT DATE: 20041106
